FAERS Safety Report 4683432-6 (Version None)
Quarter: 2005Q2

REPORT INFORMATION
  Report Type: 
  Country: None (occurrence: None)
  Receive Date: 20050607
  Receipt Date: 20050526
  Transmission Date: 20051028
  Serious: Yes (Hospitalization)
  Sender: FDA-Public Use
  Company Number: JP-JNJFOC-20050506989

PATIENT
  Sex: Female
  Weight: 55 kg

DRUGS (17)
  1. REMICADE [Suspect]
     Route: 042
  2. REMICADE [Suspect]
     Route: 042
  3. REMICADE [Suspect]
     Route: 042
  4. REMICADE [Suspect]
     Indication: RHEUMATOID ARTHRITIS
     Route: 042
  5. RHEUMATREX [Suspect]
  6. RHEUMATREX [Suspect]
     Indication: RHEUMATOID ARTHRITIS
  7. LETRAC [Concomitant]
     Indication: RHEUMATOID ARTHRITIS
     Route: 049
  8. FOLIAMIN [Concomitant]
     Route: 049
  9. JUVELA NICOTINATE [Concomitant]
     Route: 049
  10. MARZULENE S [Concomitant]
     Route: 049
  11. MARZULENE S [Concomitant]
     Route: 049
  12. GEFANIL [Concomitant]
     Route: 049
  13. TOYOFAROL [Concomitant]
     Route: 049
  14. VITAMEDIN [Concomitant]
     Route: 049
  15. VITAMEDIN [Concomitant]
     Route: 049
  16. VITAMEDIN [Concomitant]
     Route: 049
  17. INH [Concomitant]
     Dates: start: 20040930, end: 20050317

REACTIONS (3)
  - OVARIAN ABSCESS [None]
  - OVARIAN CANCER [None]
  - OVARIAN GRANULOSA-THECA CELL TUMOUR [None]
